FAERS Safety Report 4443759-X (Version None)
Quarter: 2004Q3

REPORT INFORMATION
  Report Type: 
  Country: None (occurrence: None)
  Receive Date: 20040908
  Receipt Date: 20030212
  Transmission Date: 20050211
  Serious: Yes (Hospitalization)
  Sender: FDA-Public Use
  Company Number: PHBS2003ES01883

PATIENT
  Age: 56 Year
  Sex: Female
  Weight: 61 kg

DRUGS (6)
  1. SANDIMMUN NEORAL [Suspect]
     Indication: RENAL TRANSPLANT
     Dosage: 10 MG/KG/D
     Route: 065
  2. SIMULECT [Suspect]
     Indication: RENAL TRANSPLANT
     Dosage: 20 MG/D
     Route: 042
  3. SIMULECT [Suspect]
     Dosage: 20 MG/D
     Route: 042
  4. METHYLPREDNISOLONE [Suspect]
     Indication: RENAL TRANSPLANT
     Dosage: 500 MG/D
     Route: 042
  5. METHYLPREDNISOLONE [Suspect]
     Dosage: 125 MG/D
     Route: 042
  6. PREDNISONE [Suspect]
     Indication: RENAL TRANSPLANT
     Dosage: 10 MG/D
     Route: 048

REACTIONS (17)
  - ACINETOBACTER INFECTION [None]
  - ASPERGILLOSIS [None]
  - BLOOD CREATININE INCREASED [None]
  - COMPLICATIONS OF TRANSPLANTED KIDNEY [None]
  - GENERAL PHYSICAL HEALTH DETERIORATION [None]
  - HYPOXIA [None]
  - LUNG INFILTRATION [None]
  - NEPHRECTOMY [None]
  - PARAESTHESIA [None]
  - PERIPHERAL ARTERY ANEURYSM [None]
  - PERIPHERAL COLDNESS [None]
  - PULSE ABNORMAL [None]
  - PYELOCALIECTASIS [None]
  - RENAL IMPAIRMENT [None]
  - RESPIRATORY TRACT INFECTION [None]
  - TUBERCULOSIS [None]
  - VASCULAR PSEUDOANEURYSM [None]
